FAERS Safety Report 9931110 (Version 1)
Quarter: 2014Q1

REPORT INFORMATION
  Report Type: Spontaneous
  Country: US (occurrence: US)
  Receive Date: 20140227
  Receipt Date: 20140227
  Transmission Date: 20141002
  Serious: Yes (Death)
  Sender: FDA-Public Use
  Company Number: US-ROCHE-1357670

PATIENT
  Age: 36 Year
  Sex: Female

DRUGS (1)
  1. ZELBORAF [Suspect]
     Indication: MALIGNANT MELANOMA
     Dosage: TAKE 4 TABLETS BY MOUTH EVERY 12 HOURS
     Route: 048
     Dates: start: 20140121, end: 20140225

REACTIONS (1)
  - Death [Fatal]
